FAERS Safety Report 10978975 (Version 2)
Quarter: 2015Q2

REPORT INFORMATION
  Report Type: Spontaneous
  Country: US (occurrence: US)
  Receive Date: 20150402
  Receipt Date: 20150428
  Transmission Date: 20150821
  Serious: No
  Sender: FDA-Public Use
  Company Number: US-PFIZER INC-2015108955

PATIENT
  Age: 82 Year
  Sex: Female
  Weight: 91 kg

DRUGS (7)
  1. LACTASE [Concomitant]
     Active Substance: LACTASE
     Dosage: 2 DF, DAILY
  2. TYLENOL [Concomitant]
     Active Substance: ACETAMINOPHEN
     Dosage: UNKNOWN
  3. BABY ASPIRIN [Concomitant]
     Active Substance: ASPIRIN
     Indication: FAMILIAL RISK FACTOR
     Dosage: 81 MG, UNK
  4. ADVIL PM [Suspect]
     Active Substance: DIPHENHYDRAMINE CITRATE\IBUPROFEN
     Dosage: UNKNOWN
  5. HYDROXYCHLOROQUINE [Concomitant]
     Active Substance: HYDROXYCHLOROQUINE
     Indication: ARTHRITIS
     Dosage: 200 MG, 2X/DAY
  6. CENTRUM SILVER [Concomitant]
     Active Substance: VITAMINS
     Indication: PROPHYLAXIS
     Dosage: UNK, DAILY
  7. FISH OIL [Concomitant]
     Active Substance: FISH OIL
     Dosage: UNK, ALTERNATE DAY

REACTIONS (2)
  - Asthenia [Unknown]
  - Abdominal discomfort [Unknown]
